FAERS Safety Report 5160219-1 (Version None)
Quarter: 2006Q4

REPORT INFORMATION
  Report Type: 
  Country: None (occurrence: None)
  Receive Date: 20061120
  Receipt Date: 20061106
  Transmission Date: 20070319
  Serious: Yes (Death)
  Sender: FDA-Public Use
  Company Number: POMP-10870

PATIENT
  Age: 3 Month
  Sex: Male
  Weight: 6 kg

DRUGS (1)
  1. MYOZYME [Suspect]
     Indication: GLYCOGEN STORAGE DISEASE TYPE II
     Dosage: 20 MG/KG ONCE IV
     Route: 042
     Dates: start: 20061101, end: 20061101

REACTIONS (1)
  - CARDIO-RESPIRATORY ARREST [None]
